FAERS Safety Report 4601374-9 (Version None)
Quarter: 2005Q1

REPORT INFORMATION
  Report Type: 
  Country: None (occurrence: None)
  Receive Date: 20050308
  Receipt Date: 20050302
  Transmission Date: 20050727
  Serious: Yes (Hospitalization)
  Sender: FDA-Public Use
  Company Number: 200511698US

PATIENT
  Sex: Female

DRUGS (2)
  1. LOVENOX [Suspect]
     Route: 051
  2. COUMADIN [Concomitant]
     Dosage: DOSE: UNK

REACTIONS (4)
  - ABASIA [None]
  - BLOOD PRESSURE DECREASED [None]
  - COMPARTMENT SYNDROME [None]
  - LOSS OF CONSCIOUSNESS [None]
